FAERS Safety Report 25138172 (Version 1)
Quarter: 2025Q1

REPORT INFORMATION
  Report Type: Spontaneous
  Country: US (occurrence: US)
  Receive Date: 20250330
  Receipt Date: 20250330
  Transmission Date: 20250408
  Serious: No
  Sender: ABBVIE
  Company Number: US-ABBVIE-6196402

PATIENT
  Age: 52 Year
  Sex: Female

DRUGS (1)
  1. RINVOQ [Suspect]
     Active Substance: UPADACITINIB
     Indication: Colitis ulcerative
     Route: 048
     Dates: end: 202503

REACTIONS (3)
  - Glycosylated haemoglobin increased [Unknown]
  - Hepatic enzyme increased [Unknown]
  - Headache [Unknown]

NARRATIVE: CASE EVENT DATE: 20250320
